FAERS Safety Report 14191396 (Version 3)
Quarter: 2017Q4

REPORT INFORMATION
  Report Type: Spontaneous
  Country: FR (occurrence: FR)
  Receive Date: 20171115
  Receipt Date: 20171122
  Transmission Date: 20180321
  Serious: Yes (Hospitalization)
  Sender: FDA-Public Use
  Company Number: FR-ASTRAZENECA-2017SF15263

PATIENT
  Age: 25918 Day
  Sex: Male

DRUGS (16)
  1. LANSOPRAZOLE. [Suspect]
     Active Substance: LANSOPRAZOLE
     Route: 048
     Dates: start: 20171006, end: 20171013
  2. CARDENSIEL [Concomitant]
     Active Substance: BISOPROLOL FUMARATE
  3. OXYNORM [Concomitant]
     Active Substance: OXYCODONE HYDROCHLORIDE
  4. RENVELA [Concomitant]
     Active Substance: SEVELAMER CARBONATE
  5. ABSTRAL [Concomitant]
     Active Substance: FENTANYL CITRATE
  6. KAYEXALATE [Concomitant]
     Active Substance: SODIUM POLYSTYRENE SULFONATE
  7. KARDEGIC [Suspect]
     Active Substance: ASPIRIN DL-LYSINE
     Route: 048
     Dates: start: 20171013
  8. ARANESP [Concomitant]
     Active Substance: DARBEPOETIN ALFA
  9. CANDESARTAN CILEXETIL. [Suspect]
     Active Substance: CANDESARTAN CILEXETIL
     Dosage: HALF TABLET, EQUAL TO 8 MG, IN THE MORNING
     Route: 048
     Dates: start: 20171002, end: 20171016
  10. CALCIPARINE [Suspect]
     Active Substance: HEPARIN CALCIUM
     Route: 065
     Dates: start: 20171004, end: 20171013
  11. NOVONORM [Concomitant]
     Active Substance: REPAGLINIDE
  12. FORLAX [Concomitant]
     Active Substance: POLYETHYLENE GLYCOL 4000
  13. INEXIUM [Suspect]
     Active Substance: ESOMEPRAZOLE
     Route: 048
     Dates: start: 20171013, end: 20171017
  14. ATORVASTATIN CALCIUM. [Suspect]
     Active Substance: ATORVASTATIN CALCIUM
     Route: 048
     Dates: end: 20171016
  15. DUROGESIC [Concomitant]
     Active Substance: FENTANYL
  16. CALCIUM ACETATE. [Concomitant]
     Active Substance: CALCIUM ACETATE

REACTIONS (1)
  - Thrombocytopenia [Recovering/Resolving]

NARRATIVE: CASE EVENT DATE: 20171016
